FAERS Safety Report 17500460 (Version 1)
Quarter: 2020Q1

REPORT INFORMATION
  Report Type: Spontaneous
  Country: US (occurrence: US)
  Receive Date: 20200224
  Receipt Date: 20200224
  Transmission Date: 20200409
  Serious: No
  Sender: FDA-Public Use
  Company Number: None

PATIENT
  Age: 50 Year
  Sex: Male

DRUGS (1)
  1. CYCLOSPORINE MODIFIED [Suspect]
     Active Substance: CYCLOSPORINE
     Indication: NEPHROSCLEROSIS
     Route: 048
     Dates: start: 201906

REACTIONS (2)
  - Therapy cessation [None]
  - Drug intolerance [None]

NARRATIVE: CASE EVENT DATE: 20200205
